FAERS Safety Report 9846672 (Version 1)
Quarter: 2014Q1

REPORT INFORMATION
  Report Type: Spontaneous
  Country: BR (occurrence: BR)
  Receive Date: 20140127
  Receipt Date: 20140127
  Transmission Date: 20141002
  Serious: Yes (Hospitalization, Other)
  Sender: FDA-Public Use
  Company Number: BR-ASTRAZENECA-2014SE04822

PATIENT
  Age: 63 Year
  Sex: Male
  Weight: 67 kg

DRUGS (9)
  1. ATENOLOL [Suspect]
     Indication: HYPERTENSION
     Dosage: EVERY MORNING
     Route: 048
  2. OMEPRAZOLE [Suspect]
     Indication: ABDOMINAL DISCOMFORT
     Dosage: EVERY MORNING
     Route: 048
  3. CRESTOR [Suspect]
     Indication: BLOOD CHOLESTEROL INCREASED
     Route: 048
     Dates: start: 2013, end: 201401
  4. CRESTOR [Suspect]
     Indication: BLOOD CHOLESTEROL INCREASED
     Route: 048
  5. MONOCORDIL [Concomitant]
     Dosage: BID
     Route: 048
  6. CITALOPRAM [Concomitant]
     Dosage: EVERY MORNING
     Route: 048
  7. ASPIRINA [Concomitant]
     Route: 048
  8. ALOPURINOL [Concomitant]
     Indication: GOUT
     Dosage: AT NIGHT
     Route: 048
  9. GLIFAGE [Concomitant]
     Indication: DIABETES PROPHYLAXIS
     Dosage: AT NIGHT
     Route: 048

REACTIONS (3)
  - Arterial occlusive disease [Recovered/Resolved]
  - Myocardial infarction [Recovered/Resolved]
  - Blood cholesterol increased [Unknown]
